FAERS Safety Report 8322859-8 (Version None)
Quarter: 2012Q2

REPORT INFORMATION
  Report Type: 
  Country: None (occurrence: None)
  Receive Date: 20120430
  Receipt Date: 20110201
  Transmission Date: 20120825
  Serious: Yes (Other)
  Sender: FDA-Public Use
  Company Number: US-TEVA-2011000521

PATIENT
  Sex: Female
  Weight: 45.4 kg

DRUGS (4)
  1. ADVIL D SINUS/COLD [Concomitant]
  2. PROVIGIL [Suspect]
     Dosage: 500 MILLIGRAM;
     Route: 048
     Dates: start: 20090101
  3. PROVIGIL [Suspect]
     Indication: NARCOLEPSY
     Route: 048
     Dates: start: 20050201, end: 20090101
  4. SEASONIQUE [Concomitant]
     Indication: CONTRACEPTION

REACTIONS (4)
  - ANXIETY [None]
  - DRUG PRESCRIBING ERROR [None]
  - DRUG TOLERANCE [None]
  - MIGRAINE [None]
